FAERS Safety Report 8574089-2 (Version None)
Quarter: 2012Q3

REPORT INFORMATION
  Report Type: 
  Country: None (occurrence: None)
  Receive Date: 20120806
  Receipt Date: 20120731
  Transmission Date: 20120928
  Serious: Yes (Hospitalization)
  Sender: FDA-Public Use
  Company Number: PHHY2012JP067250

PATIENT
  Sex: Male

DRUGS (4)
  1. AFINITOR [Suspect]
     Indication: METASTATIC RENAL CELL CARCINOMA
     Dosage: 5 MG,DAILY
     Route: 048
     Dates: start: 20100730, end: 20101216
  2. INTERFERON ALFA [Concomitant]
  3. SUNITINIB MALATE [Concomitant]
  4. SORAFENIB TOSILATE [Concomitant]

REACTIONS (3)
  - PNEUMONIA BACTERIAL [None]
  - C-REACTIVE PROTEIN INCREASED [None]
  - CARDIAC FAILURE [None]
